FAERS Safety Report 9372439 (Version 1)
Quarter: 2013Q2

REPORT INFORMATION
  Report Type: Report from Study
  Country: US (occurrence: US)
  Receive Date: 20130627
  Receipt Date: 20130627
  Transmission Date: 20140414
  Serious: Yes (Other)
  Sender: FDA-Public Use
  Company Number: US-MYLANLABS-2012S1024170

PATIENT
  Age: 72 Year
  Sex: Male

DRUGS (16)
  1. CLOZAPINE TABLETS [Suspect]
     Route: 048
     Dates: end: 20121116
  2. ADVAIR [Concomitant]
  3. BENZOTROPINE [Concomitant]
  4. FERROUS SULFATE [Concomitant]
  5. FOLIC ACID [Concomitant]
  6. LISINOPRIL [Concomitant]
  7. GLIPIZIDE [Concomitant]
  8. METFORMIN [Concomitant]
  9. JANUVIA [Concomitant]
  10. PREDNISONE [Concomitant]
  11. RANITIDINE [Concomitant]
  12. SERTRALINE [Concomitant]
  13. SPIRIVA [Concomitant]
  14. TAMSULOSIN [Concomitant]
  15. ZOLPIDEM [Concomitant]
  16. PROCRIT [Concomitant]

REACTIONS (2)
  - Granulocytopenia [Not Recovered/Not Resolved]
  - Leukopenia [Not Recovered/Not Resolved]
